FAERS Safety Report 5262147-X (Version None)
Quarter: 2007Q1

REPORT INFORMATION
  Report Type: 
  Country: None (occurrence: None)
  Receive Date: 20070311
  Receipt Date: 20070302
  Transmission Date: 20070707
  Serious: Yes (Other)
  Sender: FDA-Public Use
  Company Number: 2006UW03253

PATIENT
  Age: 40 Year
  Sex: Female
  Weight: 118.2 kg

DRUGS (4)
  1. SEROQUEL [Suspect]
     Indication: SLEEP DISORDER
     Route: 048
     Dates: start: 20020101, end: 20070201
  2. GEODON [Concomitant]
     Dates: start: 20050701, end: 20050801
  3. ZYPREXA/SYMBYAX [Concomitant]
     Dosage: 5 - 20 MG
     Dates: start: 20010501, end: 20051201
  4. METHADONE HCL [Concomitant]
     Indication: ANALGESIC EFFECT
     Dates: start: 20070101

REACTIONS (7)
  - BLOOD CHOLESTEROL INCREASED [None]
  - CARDIAC DISORDER [None]
  - DIABETES MELLITUS NON-INSULIN-DEPENDENT [None]
  - ILL-DEFINED DISORDER [None]
  - PANCREATITIS [None]
  - VISUAL ACUITY TESTS [None]
  - WEIGHT INCREASED [None]
